FAERS Safety Report 4318134-9 (Version None)
Quarter: 2004Q1

REPORT INFORMATION
  Report Type: 
  Country: None (occurrence: None)
  Receive Date: 20040317
  Receipt Date: 20040210
  Transmission Date: 20041129
  Serious: Yes (Other)
  Sender: FDA-Public Use
  Company Number: US-GLAXOSMITHKLINE-A0497775A

PATIENT
  Age: 34 Year
  Sex: Male
  Weight: 81.8 kg

DRUGS (3)
  1. LAMICTAL [Suspect]
     Indication: EPILEPSY
     Dosage: 500MG PER DAY
     Route: 048
  2. KEFLEX [Suspect]
     Dosage: 500MG THREE TIMES PER DAY
     Route: 048
     Dates: start: 20031203, end: 20031206
  3. DEPAKOTE ER [Concomitant]
     Dosage: 1500MG PER DAY

REACTIONS (2)
  - CONVULSION [None]
  - DRUG INTERACTION [None]
